FAERS Safety Report 21814782 (Version 1)
Quarter: 2023Q1

REPORT INFORMATION
  Report Type: Spontaneous
  Country: FR (occurrence: FR)
  Receive Date: 20230104
  Receipt Date: 20230104
  Transmission Date: 20230418
  Serious: Yes (Hospitalization)
  Sender: FDA-Public Use
  Company Number: FR-AFSSAPS-TO20223624

PATIENT
  Age: 85 Year
  Sex: Female
  Weight: 70 kg

DRUGS (2)
  1. PAROXETINE [Suspect]
     Active Substance: PAROXETINE
     Indication: Depressed mood
     Dosage: 10MG PENDANT 7 JRS PUIS 20MG (10MG FOR 7 DAYS THEN 20MG)
     Route: 048
     Dates: start: 20221123
  2. BROMAZEPAM [Suspect]
     Active Substance: BROMAZEPAM
     Indication: Depressed mood
     Dosage: 1.5 MILLIGRAM (1.5MG LE MATIN ET ? 16H)(1.5MG IN THE MORNING AND AT 4 P.M)
     Route: 048
     Dates: start: 20221123

REACTIONS (1)
  - Fall [Recovered/Resolved]

NARRATIVE: CASE EVENT DATE: 20221130
